FAERS Safety Report 23339567 (Version 1)
Quarter: 2023Q4

REPORT INFORMATION
  Report Type: Spontaneous
  Country: None (occurrence: US)
  Receive Date: 20231226
  Receipt Date: 20231226
  Transmission Date: 20240109
  Serious: No
  Sender: FDA-Public Use
  Company Number: US-Intersect Ent, Inc.-2149732

PATIENT
  Age: 64 Year
  Sex: Male

DRUGS (1)
  1. SINUVA [Suspect]
     Active Substance: MOMETASONE FUROATE
     Indication: Nasal polyps
     Route: 006
     Dates: start: 20230606, end: 20230926

REACTIONS (2)
  - Nasal crusting [Not Recovered/Not Resolved]
  - Nasal congestion [Not Recovered/Not Resolved]
